FAERS Safety Report 5525348-9 (Version None)
Quarter: 2007Q4

REPORT INFORMATION
  Report Type: 
  Country: None (occurrence: None)
  Receive Date: 20071120
  Receipt Date: 20071018
  Transmission Date: 20080405
  Serious: No
  Sender: FDA-Public Use
  Company Number: US-1164360

PATIENT
  Sex: Female

DRUGS (1)
  1. NEVANAC [Suspect]
     Indication: EYE INFLAMMATION
     Dosage: (OPHTHALMIC)
     Route: 047

REACTIONS (1)
  - VISUAL ACUITY REDUCED [None]
